FAERS Safety Report 5486079-7 (Version None)
Quarter: 2007Q4

REPORT INFORMATION
  Report Type: 
  Country: None (occurrence: None)
  Receive Date: 20071015
  Receipt Date: 20071003
  Transmission Date: 20080405
  Serious: Yes (Death, Hospitalization)
  Sender: FDA-Public Use
  Company Number: IT-PFIZER INC-2007082833

PATIENT
  Sex: Female

DRUGS (1)
  1. SU-011,248 [Suspect]
     Indication: SARCOMA
     Dosage: DAILY DOSE:37.5MG-FREQ:DAILY
     Route: 048
     Dates: start: 20070615, end: 20070828

REACTIONS (1)
  - SEPSIS [None]
